FAERS Safety Report 9669319 (Version 2)
Quarter: 2013Q4

REPORT INFORMATION
  Report Type: Spontaneous
  Country: US (occurrence: US)
  Receive Date: 20131105
  Receipt Date: 20131107
  Transmission Date: 20140711
  Serious: Yes (Other)
  Sender: FDA-Public Use
  Company Number: US-DRREDDYS-USA/USA/13/0035296

PATIENT
  Age: 16 Year
  Sex: Male
  Weight: 79.45 kg

DRUGS (2)
  1. ZENATANE [Suspect]
     Indication: ACNE CYSTIC
     Route: 048
     Dates: start: 20130303, end: 20130624
  2. ZENATANE [Suspect]
     Route: 048
     Dates: start: 20130722, end: 20131010

REACTIONS (2)
  - Emotional disorder [Recovered/Resolved]
  - Abdominal discomfort [Recovered/Resolved]
